FAERS Safety Report 16271406 (Version 10)
Quarter: 2021Q3

REPORT INFORMATION
  Report Type: Report from Study
  Country: None (occurrence: US)
  Receive Date: 20190505
  Receipt Date: 20210929
  Transmission Date: 20211014
  Serious: Yes (Hospitalization, Other)
  Sender: FDA-Public Use
  Company Number: US-ABBVIE-19K-163-2765491-00

PATIENT
  Sex: Female

DRUGS (4)
  1. PFIZER?BIONTECH COVID?19 VACCINE [Concomitant]
     Active Substance: TOZINAMERAN
     Indication: COVID-19 IMMUNISATION
     Route: 030
     Dates: start: 202104, end: 202104
  2. HUMIRA [Suspect]
     Active Substance: ADALIMUMAB
     Indication: RHEUMATOID ARTHRITIS
     Dosage: CITRATE FREE
     Route: 058
     Dates: end: 2019
  3. PFIZER?BIONTECH COVID?19 VACCINE [Concomitant]
     Active Substance: TOZINAMERAN
     Route: 030
     Dates: start: 202104, end: 202104
  4. HUMIRA [Suspect]
     Active Substance: ADALIMUMAB
     Dosage: CITRATE FREE
     Route: 058
     Dates: start: 2019

REACTIONS (42)
  - Tunnel vision [Unknown]
  - Disability [Unknown]
  - Weight increased [Not Recovered/Not Resolved]
  - Dyspepsia [Not Recovered/Not Resolved]
  - Pain [Not Recovered/Not Resolved]
  - Arthralgia [Not Recovered/Not Resolved]
  - Urinary tract infection [Unknown]
  - Blood pressure decreased [Unknown]
  - Syncope [Recovering/Resolving]
  - Urinary tract infection [Recovered/Resolved]
  - Nerve compression [Not Recovered/Not Resolved]
  - Swelling [Unknown]
  - Swelling [Recovering/Resolving]
  - Cardiovascular disorder [Recovering/Resolving]
  - Emotional disorder [Unknown]
  - Intervertebral disc degeneration [Unknown]
  - Skin discolouration [Recovering/Resolving]
  - Scoliosis [Not Recovered/Not Resolved]
  - Nasopharyngitis [Recovered/Resolved]
  - Hypothyroidism [Not Recovered/Not Resolved]
  - Intervertebral disc degeneration [Not Recovered/Not Resolved]
  - Back disorder [Not Recovered/Not Resolved]
  - Post-traumatic stress disorder [Not Recovered/Not Resolved]
  - Kidney infection [Recovered/Resolved]
  - Muscle spasms [Recovered/Resolved]
  - Rheumatoid arthritis [Not Recovered/Not Resolved]
  - Parkinson^s disease [Not Recovered/Not Resolved]
  - Carpal tunnel syndrome [Not Recovered/Not Resolved]
  - Menopause [Not Recovered/Not Resolved]
  - Pain [Unknown]
  - Carpal tunnel syndrome [Recovered/Resolved]
  - Mastication disorder [Not Recovered/Not Resolved]
  - Attention deficit hyperactivity disorder [Not Recovered/Not Resolved]
  - Fatigue [Unknown]
  - Sleep apnoea syndrome [Recovering/Resolving]
  - Auditory disorder [Not Recovered/Not Resolved]
  - Metabolic disorder [Not Recovered/Not Resolved]
  - Hypersomnia [Not Recovered/Not Resolved]
  - Panic attack [Recovering/Resolving]
  - Hypertension [Recovering/Resolving]
  - Stress [Not Recovered/Not Resolved]
  - Drug hypersensitivity [Not Recovered/Not Resolved]

NARRATIVE: CASE EVENT DATE: 2018
